FAERS Safety Report 24778765 (Version 2)
Quarter: 2025Q1

REPORT INFORMATION
  Report Type: Spontaneous
  Country: US (occurrence: US)
  Receive Date: 20241226
  Receipt Date: 20250313
  Transmission Date: 20250408
  Serious: No
  Sender: INSUD PHARMA
  Company Number: US-INSUD PHARMA-2412US09563

PATIENT

DRUGS (1)
  1. PROGESTERONE [Suspect]
     Active Substance: PROGESTERONE
     Indication: Infertility
     Dosage: 50 MILLIGRAM, QD
     Route: 030
     Dates: start: 20241205, end: 20241210

REACTIONS (4)
  - Progesterone decreased [Unknown]
  - Product use in unapproved indication [Unknown]
  - Product use issue [Unknown]
  - Product substitution issue [Unknown]

NARRATIVE: CASE EVENT DATE: 20241205
